FAERS Safety Report 6171499-8 (Version None)
Quarter: 2009Q2

REPORT INFORMATION
  Report Type: 
  Country: None (occurrence: None)
  Receive Date: 20090429
  Receipt Date: 20090423
  Transmission Date: 20091009
  Serious: Yes (Other)
  Sender: FDA-Public Use
  Company Number: US-BAYER-200911052BCC

PATIENT
  Age: 66 Year
  Sex: Male

DRUGS (3)
  1. ASPIRIN [Suspect]
     Indication: STENT PLACEMENT
     Dosage: UNIT DOSE: 81 MG
     Dates: start: 19890101
  2. ASPIRIN [Suspect]
     Dosage: UNIT DOSE: 81 MG
     Dates: start: 19950101
  3. PLAVIX [Suspect]
     Indication: STENT PLACEMENT
     Dosage: UNIT DOSE: 75 MG
     Route: 048
     Dates: start: 19950101

REACTIONS (7)
  - CEREBROVASCULAR ACCIDENT [None]
  - CONTUSION [None]
  - HAEMORRHAGE SUBCUTANEOUS [None]
  - HAEMORRHAGIC DIATHESIS [None]
  - MIGRAINE [None]
  - PARALYSIS [None]
  - PROTEIN URINE PRESENT [None]
